FAERS Safety Report 15136076 (Version 1)
Quarter: 2018Q3

REPORT INFORMATION
  Report Type: Spontaneous
  Country: CH (occurrence: CH)
  Receive Date: 20180712
  Receipt Date: 20180712
  Transmission Date: 20181010
  Serious: Yes (Other)
  Sender: FDA-Public Use
  Company Number: PHHY2017CH030882

PATIENT
  Age: 37 Year
  Sex: Female

DRUGS (1)
  1. VALSARTAN SANDOZ [Suspect]
     Active Substance: VALSARTAN
     Indication: HYPERTENSION
     Dosage: 1 DF, QD, EVERY MORNING
     Route: 048
     Dates: start: 2016, end: 20170223

REACTIONS (1)
  - Maternal exposure during pregnancy [Unknown]
